FAERS Safety Report 25262542 (Version 1)
Quarter: 2025Q2

REPORT INFORMATION
  Report Type: Spontaneous
  Country: AU (occurrence: AU)
  Receive Date: 20250502
  Receipt Date: 20250502
  Transmission Date: 20250716
  Serious: Yes (Hospitalization, Other)
  Sender: CSL BEHRING
  Company Number: AU-BEH-2025202920

PATIENT
  Age: 15 Year

DRUGS (1)
  1. HUMAN IMMUNOGLOBULIN G [Suspect]
     Active Substance: HUMAN IMMUNOGLOBULIN G
     Indication: Immune thrombocytopenia
     Route: 042
     Dates: start: 20250210, end: 20250210

REACTIONS (12)
  - Meningitis aseptic [Unknown]
  - Hypersensitivity [Unknown]
  - Headache [Unknown]
  - Eye pain [Unknown]
  - Photophobia [Unknown]
  - Cold sweat [Unknown]
  - Lethargy [Unknown]
  - Cough [Recovered/Resolved]
  - Throat irritation [Recovered/Resolved]
  - Wheezing [Recovered/Resolved]
  - Dizziness [Unknown]
  - Nausea [Unknown]

NARRATIVE: CASE EVENT DATE: 20250210
